FAERS Safety Report 22157985 (Version 1)
Quarter: 2023Q1

REPORT INFORMATION
  Report Type: Spontaneous
  Country: US (occurrence: US)
  Receive Date: 20230330
  Receipt Date: 20230330
  Transmission Date: 20230418
  Serious: No
  Sender: FDA-Public Use
  Company Number: US-BIOGEN-2023BI01185108

PATIENT
  Age: 43 Year
  Sex: Female

DRUGS (2)
  1. TECFIDERA [Suspect]
     Active Substance: DIMETHYL FUMARATE
     Indication: Multiple sclerosis
     Route: 050
     Dates: start: 20210521
  2. TECFIDERA [Suspect]
     Active Substance: DIMETHYL FUMARATE
     Route: 050

REACTIONS (3)
  - Flushing [Not Recovered/Not Resolved]
  - Rash [Unknown]
  - Visual impairment [Recovered/Resolved]

NARRATIVE: CASE EVENT DATE: 20230131
